FAERS Safety Report 12895530 (Version 3)
Quarter: 2016Q4

REPORT INFORMATION
  Report Type: Report from Study
  Country: BR (occurrence: BR)
  Receive Date: 20161030
  Receipt Date: 20161211
  Transmission Date: 20170207
  Serious: Yes (Hospitalization, Other)
  Sender: FDA-Public Use
  Company Number: PHHY2016BR148654

PATIENT
  Age: 39 Year
  Sex: Female
  Weight: 68 kg

DRUGS (5)
  1. AFINITOR [Suspect]
     Active Substance: EVEROLIMUS
     Dosage: 7.5 MG, QD (1 TABLET OF 5MG AND 1 TABLET OF 2.5MG)
     Route: 048
  2. AFINITOR [Suspect]
     Active Substance: EVEROLIMUS
     Indication: BREAST CANCER
     Dosage: 10 MG, QD
     Route: 048
     Dates: start: 201604
  3. AFINITOR [Suspect]
     Active Substance: EVEROLIMUS
     Dosage: 2.5 MG, QD (1 TABLET A DAY)
     Route: 048
     Dates: start: 201610
  4. AFINITOR [Suspect]
     Active Substance: EVEROLIMUS
     Dosage: 5 MG, QD (1 TABLET A DAY)
     Route: 048
     Dates: start: 201610
  5. AROMASIN [Concomitant]
     Active Substance: EXEMESTANE
     Indication: RENAL DISORDER
     Dosage: 1 DF, QD (1 TABLET A DAY)
     Route: 048
     Dates: start: 201604

REACTIONS (13)
  - Blood triglycerides abnormal [Recovering/Resolving]
  - Diarrhoea [Recovering/Resolving]
  - Diabetes mellitus [Recovering/Resolving]
  - Irritability [Recovered/Resolved]
  - Blood cholesterol abnormal [Recovering/Resolving]
  - Fatigue [Recovering/Resolving]
  - Rash [Recovered/Resolved]
  - Drug intolerance [Unknown]
  - Skin hypertrophy [Not Recovered/Not Resolved]
  - Pharyngitis [Recovered/Resolved]
  - Bone pain [Recovered/Resolved]
  - Pneumonitis [Recovered/Resolved]
  - Pruritus generalised [Not Recovered/Not Resolved]

NARRATIVE: CASE EVENT DATE: 201604
